FAERS Safety Report 25165193 (Version 1)
Quarter: 2025Q2

REPORT INFORMATION
  Report Type: Spontaneous
  Country: US (occurrence: US)
  Receive Date: 20250407
  Receipt Date: 20250407
  Transmission Date: 20250716
  Serious: Yes (Disabling)
  Sender: NOVO NORDISK
  Company Number: US-NOVOPROD-1398670

PATIENT
  Sex: Female
  Weight: 90.703 kg

DRUGS (2)
  1. OZEMPIC [Suspect]
     Active Substance: SEMAGLUTIDE
     Indication: Type 2 diabetes mellitus
  2. WEGOVY [Suspect]
     Active Substance: SEMAGLUTIDE
     Indication: Product used for unknown indication

REACTIONS (9)
  - Disability [Unknown]
  - Depression [Unknown]
  - Malaise [Unknown]
  - Blood cholesterol increased [Unknown]
  - Asthma [Unknown]
  - Migraine [Unknown]
  - Pain [Unknown]
  - General physical health deterioration [Unknown]
  - Weight increased [Unknown]
